FAERS Safety Report 16787916 (Version 3)
Quarter: 2021Q1

REPORT INFORMATION
  Report Type: Spontaneous
  Country: FR (occurrence: FR)
  Receive Date: 20190909
  Receipt Date: 20210308
  Transmission Date: 20210419
  Serious: Yes (Hospitalization, Other)
  Sender: FDA-Public Use
  Company Number: PHHY2019FR205615

PATIENT
  Age: 69 Year
  Sex: Female

DRUGS (19)
  1. PARACETAMOL [Suspect]
     Active Substance: ACETAMINOPHEN
     Indication: PRODUCT USED FOR UNKNOWN INDICATION
     Dosage: 3 DF, QD
     Route: 048
  2. CORTANCYL [Suspect]
     Active Substance: PREDNISONE
     Indication: POLYARTHRITIS
     Dosage: 5 MG, QD
     Route: 048
  3. CORTANCYL [Suspect]
     Active Substance: PREDNISONE
     Indication: RHEUMATOID ARTHRITIS
  4. OROCAL [Concomitant]
     Indication: PRODUCT USED FOR UNKNOWN INDICATION
     Dosage: UNK, QD
     Route: 065
  5. TAREG [Concomitant]
     Active Substance: VALSARTAN
     Indication: HYPERTENSION
     Dosage: 80 MG, QD GELULE
     Route: 048
  6. HYDROXYCHLOROQUINE [Concomitant]
     Active Substance: HYDROXYCHLOROQUINE
     Indication: PRODUCT USED FOR UNKNOWN INDICATION
     Dosage: UNK
     Route: 065
  7. VALSARTAN. [Suspect]
     Active Substance: VALSARTAN
     Indication: HYPERTENSION
     Dosage: 80 MG, UNK
     Route: 048
  8. ARAVA [Suspect]
     Active Substance: LEFLUNOMIDE
     Indication: RHEUMATOID ARTHRITIS
     Dosage: 20 MG, QD
     Route: 048
  9. ACTONEL [Suspect]
     Active Substance: RISEDRONATE SODIUM
     Indication: PRODUCT USED FOR UNKNOWN INDICATION
     Dosage: UNK
     Route: 048
  10. OFLOCET [Concomitant]
     Active Substance: OFLOXACIN
     Indication: PRODUCT USED FOR UNKNOWN INDICATION
     Dosage: UNK
     Route: 048
     Dates: start: 20100820, end: 20100823
  11. MABTHERA [Suspect]
     Active Substance: RITUXIMAB
     Indication: POLYARTHRITIS
     Dosage: UNK UNK,1X
     Route: 042
  12. DAFALGAN [Concomitant]
     Active Substance: ACETAMINOPHEN
     Indication: RHEUMATOID ARTHRITIS
     Dosage: UNK, TID
     Route: 048
  13. ESTRADIOL. [Suspect]
     Active Substance: ESTRADIOL
     Indication: OESTROGEN REPLACEMENT THERAPY
     Dosage: 25 UG, Q2W (QOW)
     Route: 062
  14. ARAVA [Suspect]
     Active Substance: LEFLUNOMIDE
     Indication: POLYARTHRITIS
  15. INFLIXIMAB [Concomitant]
     Active Substance: INFLIXIMAB
     Indication: PRODUCT USED FOR UNKNOWN INDICATION
     Dosage: UNK
     Route: 065
  16. VITAMIN D3 [Suspect]
     Active Substance: CHOLECALCIFEROL
     Indication: PRODUCT USED FOR UNKNOWN INDICATION
     Dosage: 25IU/1/MG
     Route: 065
  17. MABTHERA [Suspect]
     Active Substance: RITUXIMAB
     Indication: RHEUMATOID ARTHRITIS
     Dosage: 1000 MG EVERY 2 WEEK
     Route: 042
  18. METHOTREXATE. [Suspect]
     Active Substance: METHOTREXATE
     Indication: RHEUMATOID ARTHRITIS
     Dosage: UNK
     Route: 065
  19. ZELTREX [Concomitant]
     Active Substance: VALACYCLOVIR HYDROCHLORIDE
     Indication: ORAL HERPES
     Dosage: 500 MG,BID
     Route: 048
     Dates: start: 20100820, end: 20100827

REACTIONS (11)
  - Oral pain [Unknown]
  - Periodontitis [Unknown]
  - Acute kidney injury [Unknown]
  - Osteonecrosis of jaw [Unknown]
  - Pain in jaw [Unknown]
  - Herpes simplex [Unknown]
  - Oral herpes [Recovered/Resolved]
  - Periodontal disease [Unknown]
  - Necrosis [Unknown]
  - Gastroenteritis [Unknown]
  - Gingival ulceration [Unknown]

NARRATIVE: CASE EVENT DATE: 20100722
